FAERS Safety Report 25018172 (Version 5)
Quarter: 2025Q3

REPORT INFORMATION
  Report Type: Spontaneous
  Country: US (occurrence: US)
  Receive Date: 20250227
  Receipt Date: 20250810
  Transmission Date: 20251021
  Serious: Yes (Congenital Anomaly)
  Sender: ALEXION PHARMACEUTICALS
  Company Number: US-AstraZeneca-CH-00812018A

PATIENT
  Sex: Male

DRUGS (1)
  1. NEXIUM [Suspect]
     Active Substance: ESOMEPRAZOLE MAGNESIUM
     Route: 065

REACTIONS (8)
  - Exposure during pregnancy [Unknown]
  - Body height abnormal [Unknown]
  - Limb deformity [Unknown]
  - Attention deficit hyperactivity disorder [Unknown]
  - Learning disorder [Unknown]
  - Premature baby [Unknown]
  - Gait disturbance [Unknown]
  - Fall [Unknown]
